FAERS Safety Report 24924353 (Version 2)
Quarter: 2025Q1

REPORT INFORMATION
  Report Type: Report from Study
  Country: US (occurrence: US)
  Receive Date: 20250204
  Receipt Date: 20250313
  Transmission Date: 20250409
  Serious: No
  Sender: MERCK SHARP & DOHME LLC
  Company Number: US-009507513-2502USA001007

PATIENT
  Age: 73 Year
  Sex: Female
  Weight: 64.5 kg

DRUGS (2)
  1. JANUVIA [Suspect]
     Active Substance: SITAGLIPTIN PHOSPHATE
     Indication: Blood glucose increased
     Route: 048
  2. JANUVIA [Suspect]
     Active Substance: SITAGLIPTIN PHOSPHATE
     Indication: Blood glucose increased
     Dosage: DOSE DESCRIPTION : 100 MILLIGRAM
     Route: 048
     Dates: start: 20240213, end: 20250201

REACTIONS (6)
  - Hypoglycaemia [Recovering/Resolving]
  - Incorrect dose administered [Unknown]
  - Product use issue [Unknown]
  - Fluid retention [Unknown]
  - Blood glucose increased [Unknown]
  - Product prescribing issue [Unknown]

NARRATIVE: CASE EVENT DATE: 20250101
